FAERS Safety Report 6731360-4 (Version None)
Quarter: 2010Q2

REPORT INFORMATION
  Report Type: 
  Country: None (occurrence: None)
  Receive Date: 20100517
  Receipt Date: 20100517
  Transmission Date: 20101027
  Serious: Yes (Death)
  Sender: FDA-Public Use
  Company Number: None

PATIENT
  Age: 58 Year
  Sex: Female
  Weight: 77 kg

DRUGS (9)
  1. GASTROGRAFIN [Suspect]
     Indication: ABDOMEN SCAN
     Dosage: 30 ML ONCE PO
     Route: 048
     Dates: start: 20100504, end: 20100504
  2. GABAPENDIN [Concomitant]
  3. METOPROLOL TARTRATE [Concomitant]
  4. OXYCODONE [Concomitant]
  5. ZOSYN [Concomitant]
  6. PREGABALIN [Concomitant]
  7. POTASSIUM CHLORIDE [Concomitant]
  8. POTASSIUM CHLORIDE [Concomitant]
  9. SIMVASTATIN [Concomitant]

REACTIONS (6)
  - BRADYCARDIA [None]
  - CARDIO-RESPIRATORY ARREST [None]
  - OXYGEN SATURATION DECREASED [None]
  - PUPIL FIXED [None]
  - SKIN DISCOLOURATION [None]
  - UNRESPONSIVE TO STIMULI [None]
